FAERS Safety Report 13988732 (Version 9)
Quarter: 2018Q2

REPORT INFORMATION
  Report Type: Report from Study
  Country: GB (occurrence: GB)
  Receive Date: 20170919
  Receipt Date: 20180522
  Transmission Date: 20180711
  Serious: Yes (Death, Hospitalization, Other)
  Sender: FDA-Public Use
  Company Number: GB-TAKEDA-2017MPI007985

PATIENT
  Age: 75 Year
  Sex: Female

DRUGS (1)
  1. IXAZOMIB [Suspect]
     Active Substance: IXAZOMIB
     Indication: PRODUCT USED FOR UNKNOWN INDICATION
     Dosage: UNK
     Route: 065
     Dates: start: 20170819

REACTIONS (10)
  - Abdominal pain [Unknown]
  - Escherichia sepsis [Unknown]
  - Nausea [Unknown]
  - Vaginal haemorrhage [Unknown]
  - Infection [Unknown]
  - Off label use [Unknown]
  - Neutropenic sepsis [Unknown]
  - Thrombocytopenia [Unknown]
  - Disease progression [Fatal]
  - Platelet count decreased [Unknown]
